FAERS Safety Report 6120118-5 (Version None)
Quarter: 2009Q1

REPORT INFORMATION
  Report Type: 
  Country: None (occurrence: None)
  Receive Date: 20090316
  Receipt Date: 20090310
  Transmission Date: 20090719
  Serious: Yes (Death, Hospitalization)
  Sender: FDA-Public Use
  Company Number: US-GILEAD-2009-0020388

PATIENT
  Sex: Male
  Weight: 75.046 kg

DRUGS (16)
  1. LETAIRIS [Suspect]
     Indication: PULMONARY ARTERIAL HYPERTENSION
     Route: 048
     Dates: start: 20081001
  2. LETAIRIS [Suspect]
     Route: 048
     Dates: start: 20090109
  3. REMODULIN [Concomitant]
  4. REVATIO [Concomitant]
  5. CYCLOSPORINE [Concomitant]
  6. MEGACE [Concomitant]
  7. ZOFRAN [Concomitant]
  8. OXANDROLONE [Concomitant]
  9. BACTRIM [Concomitant]
  10. PREDNISONE [Concomitant]
  11. OXYCODONE HCL [Concomitant]
  12. TRAZODONE HCL [Concomitant]
  13. LEXAPRO [Concomitant]
  14. PROMETHAZINE [Concomitant]
  15. ASPIRIN [Concomitant]
  16. SODIUM CHLORIDE [Concomitant]

REACTIONS (5)
  - ASCITES [None]
  - DEHYDRATION [None]
  - LIVER DISORDER [None]
  - NAUSEA [None]
  - TRANSPLANT FAILURE [None]
